FAERS Safety Report 19958825 (Version 1)
Quarter: 2021Q4

REPORT INFORMATION
  Report Type: Spontaneous
  Country: US (occurrence: US)
  Receive Date: 20211012
  Receipt Date: 20211012
  Transmission Date: 20220304
  Serious: Yes (Hospitalization)
  Sender: FDA-Public Use
  Company Number: None

PATIENT
  Age: 62 Year
  Sex: Female

DRUGS (1)
  1. UMBRALISIB [Suspect]
     Active Substance: UMBRALISIB
     Indication: Lymphoma
     Route: 048
     Dates: start: 20210121, end: 20210927

REACTIONS (5)
  - Headache [None]
  - Hypertension [None]
  - Therapeutic product effect incomplete [None]
  - Syncope [None]
  - Dizziness [None]

NARRATIVE: CASE EVENT DATE: 20210927
